FAERS Safety Report 18147049 (Version 1)
Quarter: 2020Q3

REPORT INFORMATION
  Report Type: Spontaneous
  Country: US (occurrence: US)
  Receive Date: 20200813
  Receipt Date: 20200813
  Transmission Date: 20201103
  Serious: No
  Sender: FDA-Public Use
  Company Number: US-MAYNE PHARMA-2019MYN000733

PATIENT

DRUGS (3)
  1. AMBIEN [Concomitant]
     Active Substance: ZOLPIDEM TARTRATE
     Indication: PRODUCT USED FOR UNKNOWN INDICATION
     Dosage: 5 MG, QD
     Route: 048
  2. CLONIDINE. [Suspect]
     Active Substance: CLONIDINE
     Indication: BLOOD PRESSURE MANAGEMENT
     Dosage: 0.1 MG, QWEEK
     Route: 061
     Dates: start: 2019, end: 20190919
  3. CLONIDINE. [Suspect]
     Active Substance: CLONIDINE
     Dosage: 0.1 MG, QD
     Route: 061
     Dates: start: 20190919, end: 20190921

REACTIONS (2)
  - Nonspecific reaction [Unknown]
  - Application site vesicles [Unknown]

NARRATIVE: CASE EVENT DATE: 2019
